FAERS Safety Report 24466336 (Version 1)
Quarter: 2024Q4

REPORT INFORMATION
  Report Type: Report from Study
  Country: US (occurrence: US)
  Receive Date: 20241018
  Receipt Date: 20241018
  Transmission Date: 20250114
  Serious: No
  Sender: ROCHE
  Company Number: US-ROCHE-3536973

PATIENT
  Age: 76 Year
  Sex: Female

DRUGS (9)
  1. XOLAIR [Suspect]
     Active Substance: OMALIZUMAB
     Indication: Urticaria
     Route: 058
     Dates: start: 2019
  2. XOLAIR [Suspect]
     Active Substance: OMALIZUMAB
     Route: 058
  3. FENOFIBRATE [Concomitant]
     Active Substance: FENOFIBRATE
  4. EZETIMIBE [Concomitant]
     Active Substance: EZETIMIBE
  5. PANTOPRAZOLE [Concomitant]
     Active Substance: PANTOPRAZOLE
  6. DILTIAZEM [Concomitant]
     Active Substance: DILTIAZEM
  7. TELMISARTAN [Concomitant]
     Active Substance: TELMISARTAN
  8. ELIQUIS [Concomitant]
     Active Substance: APIXABAN
  9. IBUPROFEN [Concomitant]
     Active Substance: IBUPROFEN

REACTIONS (3)
  - COVID-19 [Recovered/Resolved]
  - Glycosylated haemoglobin increased [Unknown]
  - Off label use [Unknown]
